FAERS Safety Report 8000572-4 (Version None)
Quarter: 2011Q4

REPORT INFORMATION
  Report Type: 
  Country: None (occurrence: None)
  Receive Date: 20111222
  Receipt Date: 20111216
  Transmission Date: 20120403
  Serious: Yes (Hospitalization, Other)
  Sender: FDA-Public Use
  Company Number: US-VERTEX PHARMACEUTICALS INC.-AE-2011-004330

PATIENT
  Sex: Male
  Weight: 95.34 kg

DRUGS (13)
  1. METOPROLOL TARTRATE [Concomitant]
  2. FLOMAX [Concomitant]
  3. INCIVEK [Suspect]
     Indication: HEPATITIS C
     Route: 048
     Dates: start: 20110905, end: 20111024
  4. LEXAPRO [Concomitant]
  5. MILK THISLE [Concomitant]
  6. INTERFERON [Concomitant]
     Indication: HEPATITIS C
     Dates: start: 20110905, end: 20111024
  7. PLAVIX [Concomitant]
  8. SIMVASTATIN [Concomitant]
  9. LEVOTHYROXINE SODIUM [Concomitant]
  10. ASPIRIN [Concomitant]
  11. RIBAVIRIN [Concomitant]
     Indication: HEPATITIS C
     Dates: start: 20110905, end: 20111024
  12. MICARDIS [Concomitant]
  13. FOLIC ACID [Concomitant]

REACTIONS (6)
  - CHEST PAIN [None]
  - HAEMOGLOBIN DECREASED [None]
  - MUSCLE ATROPHY [None]
  - TREMOR [None]
  - FULL BLOOD COUNT DECREASED [None]
  - MUSCULOSKELETAL PAIN [None]
